FAERS Safety Report 21736889 (Version 2)
Quarter: 2023Q4

REPORT INFORMATION
  Report Type: Spontaneous
  Country: US (occurrence: US)
  Receive Date: 20221216
  Receipt Date: 20231220
  Transmission Date: 20240110
  Serious: Yes (Other)
  Sender: FDA-Public Use
  Company Number: US-STRIDES ARCOLAB LIMITED-2022SP002135

PATIENT
  Age: 34 Year
  Sex: Female

DRUGS (7)
  1. VALGANCICLOVIR HYDROCHLORIDE [Suspect]
     Active Substance: VALGANCICLOVIR HYDROCHLORIDE
     Indication: Antiviral prophylaxis
     Dosage: 450 MILLIGRAM PER DAY (DAILY)
     Route: 065
  2. VALGANCICLOVIR HYDROCHLORIDE [Suspect]
     Active Substance: VALGANCICLOVIR HYDROCHLORIDE
     Dosage: 450 MILLIGRAM TWICE A DAY FOR SECONDARY PROPHYLAXIS
     Route: 048
  3. THYMOCYTE IMMUNE GLOBULIN NOS [Suspect]
     Active Substance: THYMOCYTE IMMUNE GLOBULIN NOS
     Indication: Antiviral prophylaxis
     Dosage: 4.5 MILLIGRAM/KILOGRAM, ADMINISTERED IN THREE DIVIDED DOSES (INDUCTION THERAPY)
     Route: 065
  4. AZATHIOPRINE [Concomitant]
     Active Substance: AZATHIOPRINE
     Indication: Immunosuppressant drug therapy
     Dosage: 75 MILLIGRAM, UNKNOWN
     Route: 065
  5. AZATHIOPRINE [Concomitant]
     Active Substance: AZATHIOPRINE
     Indication: Organ transplant
     Dosage: 1 MILLIGRAM/KILOGRAM, UNKNOWN
     Route: 065
  6. PROGRAF [Concomitant]
     Active Substance: TACROLIMUS
     Indication: Immunosuppressant drug therapy
     Dosage: 0.5 MILLIGRAM/KILOGRAM, EVERY 12 HRS, IMMEDIATE-RELEASE (WITH A GOAL TROUGH LEVEL OF 5-8 NG/ML FOR T
     Route: 048
  7. PROGRAF [Concomitant]
     Active Substance: TACROLIMUS
     Indication: Organ transplant
     Dosage: 0.5 MILLIGRAM/KILOGRAM, EVERY 12 HRS, EXTENED-RELEASE (ENVARSUS)
     Route: 048

REACTIONS (1)
  - Drug ineffective [Unknown]
